FAERS Safety Report 7316152-X (Version None)
Quarter: 2011Q1

REPORT INFORMATION
  Report Type: 
  Country: None (occurrence: None)
  Receive Date: 20110225
  Receipt Date: 20110224
  Transmission Date: 20110831
  Serious: Yes (Other)
  Sender: FDA-Public Use
  Company Number: RU-PFIZER INC-2011034149

PATIENT
  Age: 74 Year
  Sex: Male

DRUGS (3)
  1. ATENOLOL [Concomitant]
     Indication: HYPERTENSION
     Dosage: 12.5 MG (HALF A TABLET 25MG), 2X/DAY
     Route: 048
  2. CO-RENITEC [Concomitant]
     Indication: HYPERTENSION
     Dosage: 1 DF, 1X/DAY
     Route: 048
  3. NORVASC [Suspect]
     Indication: HYPERTENSION
     Dosage: 5 MG (HALF A TABLET 10MG), 2X/DAY
     Route: 048

REACTIONS (5)
  - COORDINATION ABNORMAL [None]
  - MYOCLONUS [None]
  - DRUG INEFFECTIVE [None]
  - CHILLS [None]
  - DYSPNOEA [None]
